FAERS Safety Report 9267020 (Version 1)
Quarter: 2013Q2

REPORT INFORMATION
  Report Type: Spontaneous
  Country: US (occurrence: US)
  Receive Date: 20130502
  Receipt Date: 20130502
  Transmission Date: 20140414
  Serious: No
  Sender: FDA-Public Use
  Company Number: US-PFIZER INC-2013132908

PATIENT
  Age: 69 Year
  Sex: Male
  Weight: 72.56 kg

DRUGS (1)
  1. ADVIL [Suspect]
     Indication: HEADACHE
     Dosage: 800MG (ELABORATED AS FOUR TABLETS OF 200MG EACH), AS NEEDED
     Route: 048

REACTIONS (2)
  - Incorrect dose administered [Unknown]
  - Somnolence [Unknown]
